FAERS Safety Report 26139687 (Version 1)
Quarter: 2025Q4

REPORT INFORMATION
  Report Type: Spontaneous
  Country: EU (occurrence: EU)
  Receive Date: 20251210
  Receipt Date: 20251210
  Transmission Date: 20260118
  Serious: Yes (Other)
  Sender: CHEPLAPHARM
  Company Number: None

PATIENT
  Age: 22 Year
  Sex: Male

DRUGS (8)
  1. OLANZAPINE [Suspect]
     Active Substance: OLANZAPINE
     Dosage: 7.5 MG PER EPISODE
     Route: 048
     Dates: start: 20251125
  2. AMPHETAMINE [Suspect]
     Active Substance: AMPHETAMINE
     Indication: Withdrawal syndrome
     Dosage: 1 TO 1.5 G EVERY 2 DAYS/ALMOST DAILY, 5?6 CAPSULES/DAY
     Route: 048
     Dates: start: 2016
  3. RITALIN [Suspect]
     Active Substance: METHYLPHENIDATE HYDROCHLORIDE
     Indication: Attention deficit hyperactivity disorder
     Dosage: 60 MG DURING THE EPISODE
     Route: 048
     Dates: start: 20251125
  4. RITALIN [Suspect]
     Active Substance: METHYLPHENIDATE HYDROCHLORIDE
     Indication: Attention deficit hyperactivity disorder
     Dosage: 60 MG DURING THE EPISODE?DAILY DOSE: 20 MILLIGRAM
     Route: 048
  5. COCAINE [Suspect]
     Active Substance: COCAINE
     Dosage: 1 COMMENT ON THE EPISODE
     Route: 045
     Dates: start: 20251125
  6. XANAX [Suspect]
     Active Substance: ALPRAZOLAM
     Dosage: 1.5 MG DURING THE EPISODE, 2 TO 3 TIMES/DAY
     Route: 048
     Dates: start: 20251125
  7. XANAX [Suspect]
     Active Substance: ALPRAZOLAM
     Dosage: REPORTS TAKING XANAX OR VALIUM WHEN HE FEELS AN AMPHETAMINE OVERDOSE
  8. VALIUM [Concomitant]
     Active Substance: DIAZEPAM
     Dosage: REPORTS TAKING XANAX OR VALIUM WHEN HE FEELS AN AMPHETAMINE OVERDOSE

REACTIONS (8)
  - Substance use disorder [Not Recovered/Not Resolved]
  - Hallucinations, mixed [Unknown]
  - Poisoning [Recovered/Resolved]
  - Tachycardia [Unknown]
  - Delusion [Unknown]
  - Anxiety [Unknown]
  - Feeling of body temperature change [Unknown]
  - Paraesthesia [Unknown]

NARRATIVE: CASE EVENT DATE: 20251125
